FAERS Safety Report 8011877-5 (Version None)
Quarter: 2011Q4

REPORT INFORMATION
  Report Type: 
  Country: None (occurrence: None)
  Receive Date: 20111228
  Receipt Date: 20111228
  Transmission Date: 20120403
  Serious: Yes (Death, Other)
  Sender: FDA-Public Use
  Company Number: BR-BAYER-2011-123801

PATIENT
  Age: 33 Year
  Sex: Female

DRUGS (1)
  1. INTERFERON BETA-1B [Suspect]
     Indication: MULTIPLE SCLEROSIS
     Dosage: UNK
     Route: 058
     Dates: start: 20111209

REACTIONS (2)
  - LUNG INFECTION [None]
  - RESPIRATORY FAILURE [None]
